FAERS Safety Report 6905755-X (Version None)
Quarter: 2010Q3

REPORT INFORMATION
  Report Type: 
  Country: None (occurrence: None)
  Receive Date: 20100804
  Receipt Date: 20100729
  Transmission Date: 20110219
  Serious: No
  Sender: FDA-Public Use
  Company Number: US-CEPHALON-2010004003

PATIENT
  Sex: Female

DRUGS (3)
  1. FENTORA [Suspect]
     Indication: MIGRAINE
     Route: 002
     Dates: start: 20100201
  2. DILAUDID [Concomitant]
  3. METHADONE HCL [Concomitant]

REACTIONS (1)
  - DRUG PRESCRIBING ERROR [None]
